FAERS Safety Report 9114906 (Version 1)
Quarter: 2013Q1

REPORT INFORMATION
  Report Type: Spontaneous
  Country: US (occurrence: None)
  Receive Date: 20130220
  Receipt Date: 20130220
  Transmission Date: 20140127
  Serious: Yes (Disabling, Other)
  Sender: FDA-Public Use
  Company Number: None

PATIENT
  Age: 56 Year
  Sex: Male
  Weight: 86.64 kg

DRUGS (4)
  1. JANUMET [Suspect]
     Indication: TYPE 2 DIABETES MELLITUS
     Dosage: 1 TABLET,  TWO TIMES DAILY
     Route: 048
     Dates: start: 20111026, end: 20130214
  2. CRESTOR [Concomitant]
  3. ZETIA [Concomitant]
  4. CELEBREX [Concomitant]

REACTIONS (2)
  - Verbal abuse [None]
  - Aggression [None]
